FAERS Safety Report 9263126 (Version 1)
Quarter: 2013Q2

REPORT INFORMATION
  Report Type: Spontaneous
  Country: US (occurrence: None)
  Receive Date: 20130426
  Receipt Date: 20130426
  Transmission Date: 20140414
  Serious: Yes (Other)
  Sender: FDA-Public Use
  Company Number: None

PATIENT
  Age: 53 Year
  Sex: Female
  Weight: 68.04 kg

DRUGS (1)
  1. BENZTROPINE [Suspect]
     Indication: TREMOR
     Route: 048
     Dates: start: 20130409, end: 20130424

REACTIONS (4)
  - Hypokalaemia [None]
  - Confusional state [None]
  - Depression [None]
  - Eye pain [None]
